FAERS Safety Report 17076081 (Version 1)
Quarter: 2019Q4

REPORT INFORMATION
  Report Type: Spontaneous
  Country: ES (occurrence: ES)
  Receive Date: 20191126
  Receipt Date: 20191126
  Transmission Date: 20200122
  Serious: Yes (Other)
  Sender: FDA-Public Use
  Company Number: ES-HONG KONG KING-FRIEND INDUSTRIAL COMPANY-2019NKF00027

PATIENT
  Age: 61 Year
  Sex: Female

DRUGS (1)
  1. CARBOPLATIN. [Suspect]
     Active Substance: CARBOPLATIN
     Indication: BREAST CANCER METASTATIC
     Dosage: ^STANDARD DOSES^ 4 CYCLES
     Route: 042

REACTIONS (4)
  - Retinal haemorrhage [Recovered/Resolved]
  - Papilloedema [Recovered/Resolved]
  - Optic atrophy [Not Recovered/Not Resolved]
  - Blindness [Not Recovered/Not Resolved]
